FAERS Safety Report 4688555-3 (Version None)
Quarter: 2005Q2

REPORT INFORMATION
  Report Type: 
  Country: None (occurrence: None)
  Receive Date: 20050311
  Receipt Date: 20050311
  Transmission Date: 20051028
  Serious: No
  Sender: FDA-Public Use
  Company Number: None

PATIENT
  Age: 94 Year
  Sex: Female

DRUGS (1)
  1. REMERON SOLTAB [Suspect]
     Dosage: 1 Q PM

REACTIONS (1)
  - WEIGHT DECREASED [None]
